FAERS Safety Report 17625808 (Version 1)
Quarter: 2020Q2

REPORT INFORMATION
  Report Type: Report from Study
  Country: HN (occurrence: HN)
  Receive Date: 20200404
  Receipt Date: 20200404
  Transmission Date: 20200713
  Serious: Yes (Life-Threatening, Hospitalization)
  Sender: FDA-Public Use
  Company Number: NVSC2020HN091782

PATIENT
  Age: 78 Year
  Sex: Female

DRUGS (4)
  1. CARBIMEN [Concomitant]
     Indication: CARDIAC DISORDER
     Dosage: 20 MG
     Route: 065
  2. EXFORGE HCT [Suspect]
     Active Substance: AMLODIPINE BESYLATE\HYDROCHLOROTHIAZIDE\VALSARTAN
     Indication: PRODUCT USED FOR UNKNOWN INDICATION
     Dosage: UNK, (10/320/25 MG)
     Route: 065
  3. EXFORGE [Suspect]
     Active Substance: AMLODIPINE BESYLATE\VALSARTAN
     Indication: BLOOD PRESSURE MEASUREMENT
     Dosage: UNK, (5/320 MG)
     Route: 065
     Dates: start: 202001
  4. CO-DIOVAN [Suspect]
     Active Substance: HYDROCHLOROTHIAZIDE\VALSARTAN
     Indication: BLOOD PRESSURE MEASUREMENT
     Dosage: UNK, (10/320/25 MG)
     Route: 065
     Dates: start: 202001

REACTIONS (2)
  - Coma [Unknown]
  - Incorrect dose administered [Unknown]
